FAERS Safety Report 7718207-4 (Version None)
Quarter: 2011Q3

REPORT INFORMATION
  Report Type: 
  Country: None (occurrence: None)
  Receive Date: 20110830
  Receipt Date: 20110819
  Transmission Date: 20111222
  Serious: Yes (Other)
  Sender: FDA-Public Use
  Company Number: PHHY2011BR27677

PATIENT
  Sex: Female

DRUGS (2)
  1. CLOXAZOLAM [Concomitant]
     Indication: SLEEP DISORDER
     Dosage: 2 MG, QD
  2. RITALIN LA [Suspect]
     Indication: ATTENTION DEFICIT/HYPERACTIVITY DISORDER
     Dosage: 20 MG, QD
     Route: 048

REACTIONS (5)
  - DRUG INEFFECTIVE [None]
  - THROMBOSIS [None]
  - DEPRESSION [None]
  - ANXIETY [None]
  - DECREASED INTEREST [None]
